FAERS Safety Report 8280916-9 (Version None)
Quarter: 2012Q2

REPORT INFORMATION
  Report Type: 
  Country: None (occurrence: None)
  Receive Date: 20120412
  Receipt Date: 20120403
  Transmission Date: 20120825
  Serious: Yes (Death)
  Sender: FDA-Public Use
  Company Number: PH-BAXTER-2012BAX002474

PATIENT
  Sex: Female

DRUGS (8)
  1. RENVELA [Concomitant]
  2. WINDROP [Concomitant]
  3. EPREX [Concomitant]
  4. DIANEAL PD2 WITH 2.5% DEXTROSE [Suspect]
     Route: 033
     Dates: start: 20120305
  5. IMDUR [Concomitant]
  6. POTASSIUM CHLORIDE [Concomitant]
  7. PLENDIL [Concomitant]
  8. DIANEAL PD-2 W/ DEXTROSE 1.5% [Suspect]
     Route: 033
     Dates: start: 20120305

REACTIONS (1)
  - DEATH [None]
